FAERS Safety Report 4616568-6 (Version None)
Quarter: 2005Q2

REPORT INFORMATION
  Report Type: 
  Country: None (occurrence: None)
  Receive Date: 20050311
  Receipt Date: 20041208
  Transmission Date: 20051028
  Serious: No
  Sender: FDA-Public Use
  Company Number: 2004-00901

PATIENT
  Age: 55 Year
  Sex: Male
  Weight: 66.2 kg

DRUGS (2)
  1. VELCADE [Suspect]
     Indication: MULTIPLE MYELOMA
     Dates: start: 20040101, end: 20040101
  2. VELCADE [Suspect]
     Indication: MULTIPLE MYELOMA
     Dates: start: 20040101, end: 20040101

REACTIONS (1)
  - NEUROPATHY PERIPHERAL [None]
